FAERS Safety Report 20489212 (Version 1)
Quarter: 2022Q1

REPORT INFORMATION
  Report Type: Spontaneous
  Country: US (occurrence: None)
  Receive Date: 20220217
  Receipt Date: 20220217
  Transmission Date: 20220424
  Serious: Yes (unspecified)
  Sender: FDA-Public Use
  Company Number: None

PATIENT

DRUGS (2)
  1. HEPARIN SODIUM [Suspect]
     Active Substance: HEPARIN SODIUM
     Dates: start: 20220201, end: 20220201
  2. HEPARIN SODIUM [Suspect]
     Active Substance: HEPARIN SODIUM
     Dates: start: 20220216, end: 20220216

REACTIONS (3)
  - Cardioactive drug level below therapeutic [None]
  - Suspected product quality issue [None]
  - Product container issue [None]

NARRATIVE: CASE EVENT DATE: 20220201
